FAERS Safety Report 15579090 (Version 1)
Quarter: 2018Q4

REPORT INFORMATION
  Report Type: Report from Study
  Country: PE (occurrence: PE)
  Receive Date: 20181102
  Receipt Date: 20181102
  Transmission Date: 20190205
  Serious: Yes (Other)
  Sender: FDA-Public Use
  Company Number: PE-SA-2018SA293738

PATIENT
  Age: 80 Year
  Sex: Female

DRUGS (10)
  1. FOLIC ACID. [Concomitant]
     Active Substance: FOLIC ACID
     Indication: OSTEOPOROSIS
     Dosage: UNK UNK, UNK
     Dates: start: 201710
  2. PREDNISONE. [Concomitant]
     Active Substance: PREDNISONE
     Indication: OSTEOPOROSIS
     Dosage: UNK UNK, UNK
     Route: 048
     Dates: start: 201710
  3. LEFLUNOMIDE. [Suspect]
     Active Substance: LEFLUNOMIDE
     Indication: RHEUMATOID ARTHRITIS
     Dosage: 20 MG, QD
     Route: 048
     Dates: start: 201710
  4. CALCIUM [Concomitant]
     Active Substance: CALCIUM
     Indication: RHEUMATOID ARTHRITIS
  5. FOLIC ACID. [Concomitant]
     Active Substance: FOLIC ACID
     Indication: RHEUMATOID ARTHRITIS
  6. METHOTREXATE. [Concomitant]
     Active Substance: METHOTREXATE
     Dosage: 3 TABLETS, QW
  7. PREDNISONE. [Concomitant]
     Active Substance: PREDNISONE
     Indication: RHEUMATOID ARTHRITIS
  8. CALCIUM [Concomitant]
     Active Substance: CALCIUM
     Indication: OSTEOPOROSIS
     Dosage: UNK UNK, UNK
     Route: 048
     Dates: start: 201710
  9. CALCIBONE [CALCITRIOL] [Concomitant]
     Indication: RHEUMATOID ARTHRITIS
  10. CALCIBONE [CALCITRIOL] [Concomitant]
     Indication: OSTEOPOROSIS
     Dosage: UNK UNK, UNK
     Route: 048
     Dates: start: 201710

REACTIONS (2)
  - Urinary tract infection bacterial [Recovered/Resolved]
  - Nausea [Recovered/Resolved]

NARRATIVE: CASE EVENT DATE: 20181002
